FAERS Safety Report 7953165-9 (Version None)
Quarter: 2011Q4

REPORT INFORMATION
  Report Type: 
  Country: None (occurrence: None)
  Receive Date: 20111201
  Receipt Date: 20111122
  Transmission Date: 20120403
  Serious: Yes (Other)
  Sender: FDA-Public Use
  Company Number: US-ASTRAZENECA-2011SE60736

PATIENT
  Age: 66 Year
  Sex: Female
  Weight: 60.3 kg

DRUGS (2)
  1. PEPCID [Concomitant]
     Route: 048
  2. NEXIUM [Suspect]
     Route: 048

REACTIONS (7)
  - SPINAL OSTEOARTHRITIS [None]
  - SLEEP DISORDER [None]
  - ALOPECIA [None]
  - OSTEOPOROSIS [None]
  - GASTROOESOPHAGEAL REFLUX DISEASE [None]
  - DRUG DOSE OMISSION [None]
  - CHOKING [None]
